FAERS Safety Report 6271145-9 (Version None)
Quarter: 2009Q3

REPORT INFORMATION
  Report Type: 
  Country: None (occurrence: None)
  Receive Date: 20090716
  Receipt Date: 20090707
  Transmission Date: 20100115
  Serious: Yes (Hospitalization)
  Sender: FDA-Public Use
  Company Number: US-BAXTER-2009BH010861

PATIENT
  Age: 46 Year
  Sex: Male

DRUGS (2)
  1. DIANEAL [Suspect]
     Indication: PERITONEAL DIALYSIS
     Route: 033
     Dates: start: 20060130, end: 20090616
  2. DIANEAL [Suspect]
     Indication: PERITONEAL DIALYSIS
     Route: 033
     Dates: start: 20060130, end: 20090616

REACTIONS (7)
  - AZOTAEMIA [None]
  - EMBOLISM [None]
  - HYPOTENSION [None]
  - MALAISE [None]
  - PNEUMONIA [None]
  - SEPSIS [None]
  - VOMITING [None]
